FAERS Safety Report 8360612-X (Version None)
Quarter: 2012Q2

REPORT INFORMATION
  Report Type: 
  Country: None (occurrence: None)
  Receive Date: 20120511
  Receipt Date: 20120511
  Transmission Date: 20120825
  Serious: Yes (Other)
  Sender: FDA-Public Use
  Company Number: None

PATIENT
  Age: 50 Year
  Sex: Female

DRUGS (5)
  1. QUETIAPINE [Suspect]
     Dosage: QID PO
     Route: 048
     Dates: start: 20120501
  2. KLONOPIN [Concomitant]
  3. MOBIC [Concomitant]
  4. SPIRIVA [Concomitant]
  5. PRILOSEC [Concomitant]

REACTIONS (2)
  - CHEST PAIN [None]
  - PRODUCT SUBSTITUTION ISSUE [None]
